FAERS Safety Report 7440171-6 (Version None)
Quarter: 2011Q2

REPORT INFORMATION
  Report Type: 
  Country: None (occurrence: None)
  Receive Date: 20110427
  Receipt Date: 20110422
  Transmission Date: 20111010
  Serious: Yes (Other)
  Sender: FDA-Public Use
  Company Number: JP-PFIZER INC-2011088586

PATIENT
  Sex: Male

DRUGS (3)
  1. DECADRON [Concomitant]
  2. ESTRACYT [Suspect]
     Indication: PROSTATE CANCER
     Dosage: 626.8 MG/DAY
     Route: 048
  3. TAXOL [Concomitant]

REACTIONS (2)
  - PLEURAL EFFUSION [None]
  - INTERSTITIAL LUNG DISEASE [None]
